FAERS Safety Report 4375003-6 (Version None)
Quarter: 2004Q2

REPORT INFORMATION
  Report Type: 
  Country: None (occurrence: None)
  Receive Date: 20040604
  Receipt Date: 20040524
  Transmission Date: 20050107
  Serious: Yes (Hospitalization)
  Sender: FDA-Public Use
  Company Number: A01200402445

PATIENT
  Age: 71 Year
  Sex: Female

DRUGS (6)
  1. PLAVIX [Suspect]
     Indication: ANGIOPLASTY
     Dosage: 75 MG OD ORAL
     Route: 048
     Dates: start: 20040405, end: 20040421
  2. PLAVIX [Suspect]
     Indication: MYOCARDIAL INFARCTION
     Dosage: 75 MG OD ORAL
     Route: 048
     Dates: start: 20040405, end: 20040421
  3. PLAVIX [Suspect]
     Indication: STENT PLACEMENT
     Dosage: 75 MG OD ORAL
     Route: 048
     Dates: start: 20040405, end: 20040421
  4. TENORMIN [Concomitant]
  5. ASPEGIC 1000 [Concomitant]
  6. MONICOR LP (ISOSORBIDE MONOITRATE) [Concomitant]

REACTIONS (3)
  - HEPATIC FAILURE [None]
  - RENAL FAILURE [None]
  - THROMBOCYTOPENIA [None]
